FAERS Safety Report 22355295 (Version 1)
Quarter: 2023Q2

REPORT INFORMATION
  Report Type: Spontaneous
  Country: HU (occurrence: HU)
  Receive Date: 20230523
  Receipt Date: 20230523
  Transmission Date: 20230722
  Serious: Yes (Hospitalization)
  Sender: FDA-Public Use
  Company Number: HU-MYLANLABS-2022M1128018

PATIENT
  Age: 77 Year
  Sex: Female

DRUGS (13)
  1. AMLODIPINE [Suspect]
     Active Substance: AMLODIPINE BESYLATE
     Indication: Hypertension
     Dosage: UNK
     Route: 065
  2. DOXAZOSIN [Suspect]
     Active Substance: DOXAZOSIN MESYLATE
     Indication: Hypertension
     Dosage: 8 MG, QD (4 MG, 2X PER DAY RETARD)
     Route: 048
  3. DOXAZOSIN [Suspect]
     Active Substance: DOXAZOSIN MESYLATE
     Dosage: 4 MG, QD
     Route: 065
  4. TELMISARTAN [Suspect]
     Active Substance: TELMISARTAN
     Indication: Hypertension
     Dosage: 80 MILLIGRAM, QD (IN THE EVENING)
     Route: 065
  5. TELMISARTAN AND HYDROCHLOROTHIAZIDE [Suspect]
     Active Substance: HYDROCHLOROTHIAZIDE\TELMISARTAN
     Indication: Hypertension
     Dosage: 1 DOSAGE FORM, QD  IN THE MORNING (80/25 MG/MG), (80/12.5 MG/MG)
     Route: 048
  6. SPIRONOLACTONE [Suspect]
     Active Substance: SPIRONOLACTONE
     Indication: Hypertension
     Dosage: 12.5 MILLIGRAM, QD
     Route: 065
  7. LERCANIDIPINE [Suspect]
     Active Substance: LERCANIDIPINE
     Indication: Hypertension
     Dosage: 20 MILLIGRAM, QD (IN THE MORNING)
     Route: 065
  8. LERCANIDIPINE [Suspect]
     Active Substance: LERCANIDIPINE
     Dosage: 25 MG, QD IN THE MORNING
     Route: 065
  9. LERCANIDIPINE [Suspect]
     Active Substance: LERCANIDIPINE
     Dosage: 5 MG, QD (IN THE EVENING)
     Route: 065
  10. RILMENIDINE [Suspect]
     Active Substance: RILMENIDINE
     Indication: Hypertension
     Dosage: 2 MG, QD (1 MG, 2X PER DAY)
     Route: 048
  11. RILMENIDINE [Suspect]
     Active Substance: RILMENIDINE
     Dosage: 1 MG, QD
     Route: 065
  12. URAPIDIL [Suspect]
     Active Substance: URAPIDIL
     Indication: Hypertension
     Dosage: 180 MG, QD (60 MG, 3X PER DAY)
     Route: 048
  13. URAPIDIL [Suspect]
     Active Substance: URAPIDIL
     Dosage: 60 MG, QD
     Route: 065

REACTIONS (6)
  - Accelerated hypertension [Unknown]
  - Drug ineffective [Unknown]
  - Oedema peripheral [Unknown]
  - Heart rate increased [Unknown]
  - Peripheral swelling [Recovered/Resolved]
  - Blood pressure decreased [Unknown]
